FAERS Safety Report 9089216 (Version 1)
Quarter: 2013Q1

REPORT INFORMATION
  Report Type: Report from Study
  Country: US (occurrence: US)
  Receive Date: 20130218
  Receipt Date: 20130218
  Transmission Date: 20140127
  Serious: No
  Sender: FDA-Public Use
  Company Number: US-ABBOTT-12P-163-0936987-00

PATIENT
  Sex: Female

DRUGS (4)
  1. SIMCOR [Suspect]
     Indication: BLOOD CHOLESTEROL ABNORMAL
     Dosage: 500/20MG
     Dates: start: 201005
  2. SIMCOR [Suspect]
     Dosage: 1000/20MG
  3. SIMCOR [Suspect]
     Dosage: 1000/20MG - 2 TABLETS EVERY NIGHT
  4. ASA [Concomitant]
     Indication: PRODUCT USED FOR UNKNOWN INDICATION

REACTIONS (2)
  - Flushing [Recovered/Resolved]
  - Feeling hot [Recovered/Resolved]
